FAERS Safety Report 4376794-0 (Version None)
Quarter: 2004Q2

REPORT INFORMATION
  Report Type: 
  Country: None (occurrence: None)
  Receive Date: 20040608
  Receipt Date: 20040525
  Transmission Date: 20050107
  Serious: Yes (Other)
  Sender: FDA-Public Use
  Company Number: 198758

PATIENT
  Age: 41 Year
  Sex: Female

DRUGS (2)
  1. AVONEX [Suspect]
     Indication: MULTIPLE SCLEROSIS
     Dosage: 30 MCG QW IM
     Route: 030
     Dates: start: 20020111
  2. AVONEX [Suspect]
     Indication: MULTIPLE SCLEROSIS
     Dosage: 30 MCG QW IM
     Route: 030
     Dates: end: 20040501

REACTIONS (9)
  - COUGH [None]
  - EYE PRURITUS [None]
  - FACIAL SPASM [None]
  - HYPOVENTILATION [None]
  - ORAL NEOPLASM [None]
  - SWELLING FACE [None]
  - SWOLLEN TONGUE [None]
  - URTICARIA GENERALISED [None]
  - WHEEZING [None]
